FAERS Safety Report 10064130 (Version 2)
Quarter: 2014Q2

REPORT INFORMATION
  Report Type: Spontaneous
  Country: JP (occurrence: JP)
  Receive Date: 20140408
  Receipt Date: 20140414
  Transmission Date: 20141212
  Serious: Yes (Death, Hospitalization)
  Sender: FDA-Public Use
  Company Number: JP-JNJFOC-20140319370

PATIENT
  Age: 43 Year
  Sex: Female

DRUGS (14)
  1. XEPLION [Suspect]
     Indication: SCHIZOPHRENIA
     Route: 030
     Dates: start: 20140109, end: 20140109
  2. XEPLION [Suspect]
     Indication: SCHIZOPHRENIA
     Route: 030
     Dates: start: 20140213, end: 20140213
  3. XEPLION [Suspect]
     Indication: SCHIZOPHRENIA
     Route: 030
     Dates: start: 20140313, end: 20140313
  4. XEPLION [Suspect]
     Indication: SCHIZOPHRENIA
     Route: 030
     Dates: start: 20140116, end: 20140116
  5. INVEGA [Suspect]
     Indication: SCHIZOPHRENIA
     Route: 048
     Dates: start: 20140116, end: 20140320
  6. MAGLAX [Concomitant]
     Indication: CONSTIPATION
     Route: 048
     Dates: end: 20140320
  7. ONON [Concomitant]
     Indication: ASTHMA
     Route: 048
     Dates: end: 20140320
  8. DEPAKENE [Concomitant]
     Indication: SCHIZOPHRENIA
     Route: 048
     Dates: start: 20140116, end: 20140320
  9. LEVOTOMIN [Concomitant]
     Indication: SCHIZOPHRENIA
     Route: 048
     Dates: start: 20140116, end: 20140320
  10. LUNESTA [Concomitant]
     Indication: INSOMNIA
     Route: 048
     Dates: start: 20140116, end: 20140320
  11. NOCBIN [Concomitant]
     Indication: ALCOHOL USE
     Route: 048
     Dates: start: 20140116, end: 20140320
  12. LYRICA [Concomitant]
     Indication: PAIN
     Route: 048
     Dates: end: 20140320
  13. MUCOSTA [Concomitant]
     Indication: ABDOMINAL DISCOMFORT
     Route: 048
     Dates: end: 20140320
  14. ALOSENN [Concomitant]
     Indication: CONSTIPATION
     Route: 048
     Dates: end: 20140320

REACTIONS (4)
  - Completed suicide [Fatal]
  - Psychiatric symptom [Not Recovered/Not Resolved]
  - Treatment noncompliance [Unknown]
  - Intentional overdose [Unknown]
